FAERS Safety Report 5299582-X (Version None)
Quarter: 2007Q2

REPORT INFORMATION
  Report Type: 
  Country: None (occurrence: None)
  Receive Date: 20070417
  Receipt Date: 20070404
  Transmission Date: 20071010
  Serious: Yes (Other)
  Sender: FDA-Public Use
  Company Number: PHEH2007US04182

PATIENT
  Sex: Female

DRUGS (2)
  1. ZELNORM [Suspect]
     Indication: IRRITABLE BOWEL SYNDROME
     Dosage: 6 MG, BID
     Route: 048
     Dates: start: 20050301, end: 20070331
  2. DIGITEK [Concomitant]
     Indication: TACHYCARDIA
     Route: 048
     Dates: end: 20070301

REACTIONS (4)
  - CARDIAC DISCOMFORT [None]
  - CARDIAC VALVE DISEASE [None]
  - FATIGUE [None]
  - TACHYCARDIA [None]
